FAERS Safety Report 14840778 (Version 1)
Quarter: 2018Q2

REPORT INFORMATION
  Report Type: Spontaneous
  Country: US (occurrence: US)
  Receive Date: 20180503
  Receipt Date: 20180503
  Transmission Date: 20180711
  Serious: No
  Sender: FDA-Public Use
  Company Number: US-PFIZER INC-2018173922

PATIENT
  Age: 56 Year
  Sex: Male

DRUGS (2)
  1. LYRICA [Suspect]
     Active Substance: PREGABALIN
     Dosage: UNK
  2. NOVOLIN [Concomitant]
     Active Substance: INSULIN HUMAN
     Indication: DIABETES MELLITUS
     Dosage: 100 IU, DAILY (60 UNITS IN MORNING AND 40 UNITS IN PM)

REACTIONS (5)
  - Peripheral swelling [Unknown]
  - Swelling [Unknown]
  - Weight increased [Unknown]
  - Sneezing [Unknown]
  - Pain [Unknown]
